FAERS Safety Report 14183573 (Version 6)
Quarter: 2022Q3

REPORT INFORMATION
  Report Type: Report from Study
  Country: JP (occurrence: JP)
  Receive Date: 20171113
  Receipt Date: 20220801
  Transmission Date: 20221027
  Serious: Yes (Hospitalization)
  Sender: FDA-Public Use
  Company Number: JP-ABBVIE-17K-087-2160141-00

PATIENT
  Age: 67 Year
  Sex: Male
  Weight: 46 kg

DRUGS (3)
  1. CARBIDOPA\LEVODOPA [Suspect]
     Active Substance: CARBIDOPA\LEVODOPA
     Indication: Parkinson^s disease
     Dosage: MD 6.1 ML, CD 2.6 ML/HR A-16 HRS, ED 1 ML/UNIT A- 4
     Route: 050
     Dates: start: 20170922, end: 20171203
  2. CARBIDOPA\LEVODOPA [Suspect]
     Active Substance: CARBIDOPA\LEVODOPA
     Dosage: MD 6.1 ML, CD 2.6 ML/HR A-16 HRS, ED 1 ML/UNIT A- 4
     Route: 050
  3. ZONISAMIDE [Concomitant]
     Active Substance: ZONISAMIDE
     Indication: Parkinson^s disease
     Route: 048

REACTIONS (2)
  - Mobility decreased [Recovering/Resolving]
  - Pyrexia [Recovering/Resolving]

NARRATIVE: CASE EVENT DATE: 20171109
